FAERS Safety Report 4922635-X (Version None)
Quarter: 2006Q1

REPORT INFORMATION
  Report Type: 
  Country: None (occurrence: None)
  Receive Date: 20060223
  Receipt Date: 20060223
  Transmission Date: 20060701
  Serious: Yes (Hospitalization)
  Sender: FDA-Public Use
  Company Number: None

PATIENT
  Age: 55 Year
  Sex: Male
  Weight: 65.7716 kg

DRUGS (5)
  1. BEVACIZUMAB [Suspect]
     Indication: COLORECTAL CANCER METASTATIC
     Dosage: 476 MG
     Dates: start: 20060202
  2. IRINOTECAN HCL [Suspect]
     Indication: COLORECTAL CANCER METASTATIC
     Dosage: 420 MG
     Dates: start: 20060202
  3. CAPECITABINE (300 MG/DAY X 14D) [Suspect]
     Dosage: 300 MG/DAY X 14D
  4. ALOXI [Concomitant]
  5. DECADRON SRC [Concomitant]

REACTIONS (3)
  - EJECTION FRACTION DECREASED [None]
  - HELICOBACTER GASTRITIS [None]
  - ORAL INTAKE REDUCED [None]
